FAERS Safety Report 6898178-3 (Version None)
Quarter: 2010Q3

REPORT INFORMATION
  Report Type: 
  Country: None (occurrence: None)
  Receive Date: 20100729
  Receipt Date: 20100718
  Transmission Date: 20110219
  Serious: Yes (Hospitalization)
  Sender: FDA-Public Use
  Company Number: 235218J08USA

PATIENT
  Age: 49 Year
  Sex: Female
  Weight: 50 kg

DRUGS (10)
  1. REBIF [Suspect]
     Indication: OFF LABEL USE
     Dosage: 44 MCG, 3 IN 1 WK, SUBCUTANEOUS
     Route: 058
     Dates: start: 20050721, end: 20090201
  2. REBIF [Suspect]
     Indication: OFF LABEL USE
     Dosage: 44 MCG, 3 IN 1 WK, SUBCUTANEOUS
     Route: 058
     Dates: start: 20090718
  3. LEVOTHYROXINE SODIUM [Suspect]
  4. ESTRADIOL [Concomitant]
  5. VYTORIN [Concomitant]
  6. LORTAB (VICODIN) [Concomitant]
  7. SOMA [Concomitant]
  8. FENTANYL-100 [Concomitant]
  9. DEPAKOTE (VALPROATEISEMISODIUM) [Concomitant]
  10. ESTROGEN (ESTROGEN NOS) [Concomitant]

REACTIONS (14)
  - DRUG HYPERSENSITIVITY [None]
  - FACIAL BONES FRACTURE [None]
  - GRAND MAL CONVULSION [None]
  - IMPAIRED HEALING [None]
  - INFLUENZA LIKE ILLNESS [None]
  - LYMPHADENOPATHY [None]
  - LYMPHOCELE [None]
  - MASS [None]
  - OFF LABEL USE [None]
  - POST PROCEDURAL COMPLICATION [None]
  - PROCEDURAL SITE REACTION [None]
  - PROGRESSIVE MULTIPLE SCLEROSIS [None]
  - SINUSITIS [None]
  - UNEVALUABLE EVENT [None]
